FAERS Safety Report 8220764-9 (Version None)
Quarter: 2012Q1

REPORT INFORMATION
  Report Type: 
  Country: None (occurrence: None)
  Receive Date: 20120320
  Receipt Date: 20120315
  Transmission Date: 20120608
  Serious: Yes (Other)
  Sender: FDA-Public Use
  Company Number: SG-SANOFI-AVENTIS-2012SA017319

PATIENT
  Age: 25 Year
  Sex: Female

DRUGS (1)
  1. METRONIDAZOLE [Suspect]
     Route: 065

REACTIONS (1)
  - VOMITING [None]
